FAERS Safety Report 12575589 (Version 1)
Quarter: 2016Q3

REPORT INFORMATION
  Report Type: Report from Study
  Country: US (occurrence: US)
  Receive Date: 20160720
  Receipt Date: 20160720
  Transmission Date: 20161109
  Serious: Yes (Life-Threatening)
  Sender: FDA-Public Use
  Company Number: US-ASTELLAS-2016US027594

PATIENT
  Age: 58 Year
  Sex: Female

DRUGS (2)
  1. VISMODEGIB [Suspect]
     Active Substance: VISMODEGIB
     Indication: INVASIVE BREAST CARCINOMA
     Route: 065
     Dates: start: 20120202
  2. ERLOTINIB [Suspect]
     Active Substance: ERLOTINIB
     Indication: INVASIVE BREAST CARCINOMA
     Route: 065
     Dates: start: 20120202

REACTIONS (1)
  - Platelet count decreased [Unknown]
